FAERS Safety Report 5894991-X (Version None)
Quarter: 2008Q3

REPORT INFORMATION
  Report Type: 
  Country: None (occurrence: None)
  Receive Date: 20080924
  Receipt Date: 20080913
  Transmission Date: 20090109
  Serious: Yes (Other)
  Sender: FDA-Public Use
  Company Number: FR-PFIZER INC-2008077976

PATIENT
  Sex: Female

DRUGS (2)
  1. AROMASIN [Suspect]
     Route: 048
  2. METFORMIN HCL [Concomitant]

REACTIONS (1)
  - DIABETES MELLITUS [None]
